FAERS Safety Report 16710851 (Version 4)
Quarter: 2020Q1

REPORT INFORMATION
  Report Type: Spontaneous
  Country: JP (occurrence: JP)
  Receive Date: 20190816
  Receipt Date: 20200311
  Transmission Date: 20200409
  Serious: Yes (Hospitalization, Other)
  Sender: FDA-Public Use
  Company Number: JP-ROCHE-2302058

PATIENT
  Age: 46 Year
  Sex: Male
  Weight: 63 kg

DRUGS (7)
  1. GAZYVA [Suspect]
     Active Substance: OBINUTUZUMAB
     Indication: B-CELL LYMPHOMA
     Dosage: ON 14/MAR/2019, MOST RECENT DOSE
     Route: 041
     Dates: start: 20190307
  2. TREAKISYM [Suspect]
     Active Substance: BENDAMUSTINE HYDROCHLORIDE
     Indication: B-CELL LYMPHOMA
     Dosage: ON 09/MAR/2019, MOST RECENT DOSE
     Route: 041
     Dates: start: 20190308
  3. VICCLOX [Concomitant]
     Active Substance: ACYCLOVIR SODIUM
     Dosage: DOSAGE IS UNCERTAIN.
     Route: 048
     Dates: start: 20190307, end: 20190403
  4. FEBURIC [Concomitant]
     Active Substance: FEBUXOSTAT
     Dosage: DOSAGE IS UNCERTAIN.
     Route: 048
     Dates: start: 20190307, end: 20190403
  5. RITUXAN [Suspect]
     Active Substance: RITUXIMAB
     Indication: B-CELL LYMPHOMA
     Route: 041
     Dates: start: 20171127, end: 20180309
  6. DAIPHEN [Concomitant]
     Active Substance: SULFAMETHOXAZOLE\TRIMETHOPRIM
     Dosage: DOSAGE IS UNCERTAIN.
     Route: 048
     Dates: start: 20190307, end: 20190403
  7. SODIUM RABEPRAZOLE [Concomitant]
     Active Substance: RABEPRAZOLE SODIUM
     Dosage: DOSAGE IS UNCERTAIN.
     Route: 048
     Dates: start: 20190307, end: 20190403

REACTIONS (9)
  - Pneumonia [Recovered/Resolved]
  - Nausea [Unknown]
  - Helicobacter gastritis [Unknown]
  - Rhinorrhoea [Unknown]
  - Otitis media acute [Recovered/Resolved]
  - Liver disorder [Recovered/Resolved]
  - Occult blood positive [Unknown]
  - Ileal ulcer [Unknown]
  - Atelectasis [Unknown]

NARRATIVE: CASE EVENT DATE: 20190310
